FAERS Safety Report 5670021-X (Version None)
Quarter: 2008Q1

REPORT INFORMATION
  Report Type: 
  Country: None (occurrence: None)
  Receive Date: 20080312
  Receipt Date: 20080227
  Transmission Date: 20080703
  Serious: Yes (Life-Threatening, Hospitalization)
  Sender: FDA-Public Use
  Company Number: 2008000446

PATIENT
  Age: 49 Year
  Sex: Male
  Weight: 113 kg

DRUGS (7)
  1. ERLOTINIB (ERLOTINIB HCL) (TABLET) (ERLOTINIB HCL) [Suspect]
     Indication: NON-SMALL CELL LUNG CANCER
     Dosage: (150 MG, QD), ORAL
     Route: 048
     Dates: start: 20071107, end: 20071113
  2. PEMETREXED (PEMETREXED)(INJECTION FOR INFUSION) [Suspect]
     Dosage: (1193 MG,Q3W), INTRAVENOUS
     Route: 042
     Dates: start: 20071107, end: 20071107
  3. APO-FAMOTIDINE (FAMOTIDINE) [Concomitant]
  4. TIOTROPIUM BROMIDE [Concomitant]
  5. FOLIC ACID [Concomitant]
  6. VITAMIN B12 [Concomitant]
  7. DEXAMETHASONE TAB [Concomitant]

REACTIONS (6)
  - ABDOMINAL PAIN [None]
  - DERMATITIS ACNEIFORM [None]
  - FATIGUE [None]
  - FEBRILE NEUTROPENIA [None]
  - HEADACHE [None]
  - PYREXIA [None]
